FAERS Safety Report 12329594 (Version 1)
Quarter: 2016Q2

REPORT INFORMATION
  Report Type: Report from Study
  Country: US (occurrence: US)
  Receive Date: 20160503
  Receipt Date: 20160503
  Transmission Date: 20160815
  Serious: Yes (Other)
  Sender: FDA-Public Use
  Company Number: US-GILEAD-2016-0211020

PATIENT
  Age: 80 Year
  Sex: Female

DRUGS (3)
  1. CARDIAZEM                          /00489701/ [Concomitant]
  2. COUMADIN [Concomitant]
     Active Substance: WARFARIN SODIUM
  3. AMBRISENTAN [Suspect]
     Active Substance: AMBRISENTAN
     Indication: PRODUCT USED FOR UNKNOWN INDICATION
     Dosage: 5 MG, QD
     Route: 065
     Dates: start: 20131010

REACTIONS (4)
  - Syncope [Unknown]
  - Fall [Unknown]
  - Amnesia [Unknown]
  - Balance disorder [Unknown]
